FAERS Safety Report 13690457 (Version 1)
Quarter: 2017Q2

REPORT INFORMATION
  Report Type: Spontaneous
  Country: US (occurrence: US)
  Receive Date: 20170626
  Receipt Date: 20170626
  Transmission Date: 20170830
  Serious: Yes (Disabling)
  Sender: FDA-Public Use
  Company Number: None

PATIENT
  Age: 30 Year
  Sex: Female
  Weight: 68.1 kg

DRUGS (4)
  1. VITAMIN D [Concomitant]
     Active Substance: CHOLECALCIFEROL
  2. PROBIOTIC [Concomitant]
     Active Substance: PROBIOTICS NOS
  3. PRENATAL VITAMIN [Concomitant]
     Active Substance: VITAMINS
  4. MIRENA [Suspect]
     Active Substance: LEVONORGESTREL

REACTIONS (2)
  - Weight increased [None]
  - Alopecia [None]
